FAERS Safety Report 23772360 (Version 3)
Quarter: 2024Q2

REPORT INFORMATION
  Report Type: Spontaneous
  Country: US (occurrence: US)
  Receive Date: 20240423
  Receipt Date: 20240522
  Transmission Date: 20240715
  Serious: Yes (Hospitalization, Other)
  Sender: FDA-Public Use
  Company Number: US-Accord-420080

PATIENT
  Age: 78 Year
  Sex: Male
  Weight: 65 kg

DRUGS (5)
  1. METHOTREXATE [Suspect]
     Active Substance: METHOTREXATE
     Indication: Central nervous system lymphoma
     Dosage: 2 CYCLES??HIGH DOSE; (6.1 G) IN SODIUM CHLORIDE 0.9% (NS) 500 ML IVPB, 1 OF 6 CYCLES
     Dates: start: 20230217, end: 20230710
  2. RITUXIMAB [Suspect]
     Active Substance: RITUXIMAB
     Indication: Central nervous system lymphoma
     Dosage: TWO CYCLES
     Dates: start: 20230217, end: 20230710
  3. DEXAMETHASONE [Concomitant]
     Active Substance: DEXAMETHASONE
     Indication: Brain oedema
  4. SODIUM CHLORIDE [Concomitant]
     Active Substance: SODIUM CHLORIDE
     Dosage: 700 ML IVPB (STANDARD INFUSION), INTRAVENOUS, WITH RITUXIMAB 1 OF 6 CYCLES
     Route: 042
     Dates: start: 2023
  5. SODIUM CHLORIDE [Concomitant]
     Active Substance: SODIUM CHLORIDE
     Dosage: 500 ML IVPB, WITH METHOTREXATE 1 OF 6 CYCLES
     Route: 042
     Dates: start: 2023

REACTIONS (4)
  - Therapy partial responder [Unknown]
  - Leukoencephalopathy [Recovered/Resolved]
  - Hepatitis B DNA assay positive [Recovered/Resolved]
  - Cognitive disorder [Recovered/Resolved]

NARRATIVE: CASE EVENT DATE: 20230627
